FAERS Safety Report 25724783 (Version 1)
Quarter: 2025Q3

REPORT INFORMATION
  Report Type: Spontaneous
  Country: MA (occurrence: MA)
  Receive Date: 20250826
  Receipt Date: 20250826
  Transmission Date: 20251020
  Serious: Yes (Death, Hospitalization)
  Sender: NOVITIUM PHARMA
  Company Number: MA-NOVITIUMPHARMA-2025MANVP02102

PATIENT
  Age: 3 Month
  Sex: Female

DRUGS (6)
  1. SULFAMETHOXAZOLE\TRIMETHOPRIM [Suspect]
     Active Substance: SULFAMETHOXAZOLE\TRIMETHOPRIM
     Indication: Klebsiella infection
  2. HEPARIN [Concomitant]
     Active Substance: HEPARIN SODIUM
     Indication: Cerebral venous thrombosis
  3. HEPARIN [Concomitant]
     Active Substance: HEPARIN SODIUM
  4. IMIPENEM [Concomitant]
     Active Substance: IMIPENEM
  5. AMIKACIN [Concomitant]
     Active Substance: AMIKACIN
  6. GANCICLOVIR [Concomitant]
     Active Substance: GANCICLOVIR
     Indication: HIV infection

REACTIONS (1)
  - Drug ineffective [Fatal]
